FAERS Safety Report 5518242-0 (Version None)
Quarter: 2007Q4

REPORT INFORMATION
  Report Type: 
  Country: None (occurrence: None)
  Receive Date: 20071115
  Receipt Date: 20071109
  Transmission Date: 20080405
  Serious: Yes (Hospitalization)
  Sender: FDA-Public Use
  Company Number: A0668655A

PATIENT
  Age: 90 Year
  Sex: Female
  Weight: 56.4 kg

DRUGS (5)
  1. AVANDIA [Suspect]
     Dosage: 4MG TWICE PER DAY
     Route: 048
     Dates: start: 20040101, end: 20070801
  2. METFORMIN HCL [Concomitant]
     Indication: DIABETES MELLITUS
     Dosage: 1000MG TWICE PER DAY
     Dates: start: 20070828
  3. LISINOPRIL [Concomitant]
  4. ASPIRIN [Concomitant]
  5. ACTOS [Concomitant]
     Indication: DIABETES MELLITUS
     Dosage: 30MG PER DAY
     Route: 048
     Dates: start: 20070801

REACTIONS (1)
  - MYOCARDIAL INFARCTION [None]
